FAERS Safety Report 8108062-5 (Version None)
Quarter: 2012Q1

REPORT INFORMATION
  Report Type: 
  Country: None (occurrence: None)
  Receive Date: 20120202
  Receipt Date: 20120123
  Transmission Date: 20120608
  Serious: Yes (Hospitalization)
  Sender: FDA-Public Use
  Company Number: US-SANOFI-AVENTIS-2010SA029807

PATIENT
  Age: 68 Year
  Sex: Male

DRUGS (11)
  1. BLINDED THERAPY [Suspect]
     Route: 048
     Dates: start: 20090828, end: 20100430
  2. DOCETAXEL [Suspect]
     Route: 042
     Dates: start: 20100409, end: 20100409
  3. SHELCAL [Concomitant]
     Dates: start: 20100113
  4. IRON [Concomitant]
     Dates: start: 20091125
  5. DOCETAXEL [Suspect]
     Route: 042
     Dates: start: 20090828, end: 20090828
  6. DICLOFENAC SODIUM [Concomitant]
     Dates: start: 20100318
  7. GRANISETRON [Concomitant]
     Dates: start: 20100410, end: 20100412
  8. PREDNISONE TAB [Suspect]
     Dosage: 3 HOURS, 1 HOUR PRIOR TO DOCETAXEL INFUSION
     Route: 048
     Dates: start: 20090828, end: 20100501
  9. DEXAMETHASONE [Suspect]
     Indication: PREMEDICATION
     Dosage: 8 MG AT 12 HOURS, 3 HOURS AND 1 HOUR PRIOR TO DOCETAXEL INFUSION
     Route: 065
  10. BLINDED THERAPY [Suspect]
     Route: 048
     Dates: end: 20100430
  11. PANTOPRAZOLE [Concomitant]
     Dates: start: 20090822

REACTIONS (3)
  - PAIN IN EXTREMITY [None]
  - ANAEMIA [None]
  - ASTHENIA [None]
